FAERS Safety Report 4543737-6 (Version None)
Quarter: 2005Q1

REPORT INFORMATION
  Report Type: 
  Country: None (occurrence: None)
  Receive Date: 20050103
  Receipt Date: 20031202
  Transmission Date: 20050727
  Serious: Yes (Death, Hospitalization)
  Sender: FDA-Public Use
  Company Number: PL-BRISTOL-MYERS SQUIBB COMPANY-12446654

PATIENT
  Age: 66 Year
  Sex: Male

DRUGS (7)
  1. CISPLATIN [Suspect]
     Indication: NON-SMALL CELL LUNG CANCER
     Route: 042
     Dates: start: 20031016, end: 20031016
  2. PACLITAXEL [Suspect]
     Indication: NON-SMALL CELL LUNG CANCER
     Route: 042
     Dates: start: 20031016, end: 20031016
  3. INSULIN MIXTARD [Concomitant]
     Route: 058
     Dates: start: 20030901
  4. MORPHINE SULFATE [Concomitant]
     Route: 048
     Dates: start: 20030909
  5. KETOPROFEN [Concomitant]
     Route: 048
     Dates: start: 20030909
  6. FUROSEMIDE [Concomitant]
     Route: 048
     Dates: start: 20031027
  7. POTASSIUM [Concomitant]
     Dates: start: 20031027

REACTIONS (3)
  - CYANOSIS [None]
  - PNEUMONIA [None]
  - PULMONARY EMBOLISM [None]
